FAERS Safety Report 6400711-2 (Version None)
Quarter: 2009Q4

REPORT INFORMATION
  Report Type: 
  Country: None (occurrence: None)
  Receive Date: 20091014
  Receipt Date: 20091001
  Transmission Date: 20100525
  Serious: Yes (Hospitalization)
  Sender: FDA-Public Use
  Company Number: ES-ELI_LILLY_AND_COMPANY-ES200909004594

PATIENT
  Age: 74 Year
  Sex: Female

DRUGS (8)
  1. FORTEO [Suspect]
     Indication: OSTEOPOROSIS
     Dosage: 20 UG, UNKNOWN
     Route: 058
     Dates: start: 20090821, end: 20090918
  2. CALCIUM [Concomitant]
     Dosage: UNK, UNKNOWN
     Route: 065
  3. FERRUM [Concomitant]
     Indication: ANAEMIA
     Dosage: UNK, UNKNOWN
     Route: 065
  4. ORFIDAL [Concomitant]
     Dosage: UNK, UNKNOWN
     Route: 065
  5. ANASMA [Concomitant]
     Dosage: UNK, UNKNOWN
     Route: 055
  6. LEVOTRIN [Concomitant]
     Dosage: UNK, UNKNOWN
     Route: 065
  7. TERMALGIN [Concomitant]
     Dosage: 3 D/F, DAILY (1/D)
     Route: 065
  8. NOLOTIL [Concomitant]
     Dosage: UNK, UNKNOWN
     Route: 065

REACTIONS (3)
  - COLITIS ULCERATIVE [None]
  - DIZZINESS [None]
  - LOSS OF CONSCIOUSNESS [None]
